FAERS Safety Report 6399302-1 (Version None)
Quarter: 2009Q4

REPORT INFORMATION
  Report Type: 
  Country: None (occurrence: None)
  Receive Date: 20091014
  Receipt Date: 20070706
  Transmission Date: 20100525
  Serious: Yes (Hospitalization, Other)
  Sender: FDA-Public Use
  Company Number: US-ASTRAZENECA-2006UW08473

PATIENT
  Age: 39 Year
  Sex: Female
  Weight: 70.3 kg

DRUGS (17)
  1. SEROQUEL [Suspect]
     Indication: BIPOLAR DISORDER
     Route: 048
     Dates: start: 19980101
  2. SEROQUEL [Suspect]
     Dosage: 400 - 900 MG DAILY
     Route: 048
     Dates: start: 20040119
  3. GEODON [Concomitant]
     Dates: start: 20050101
  4. HALDOL [Concomitant]
     Dates: start: 19980101, end: 20060101
  5. THORAZINE [Concomitant]
     Dates: start: 19750101
  6. VISTARIL [Concomitant]
     Dates: start: 20050217
  7. PHENOBARBITAL [Concomitant]
     Dates: start: 20010115
  8. OXYCONTIN [Concomitant]
     Dates: start: 19980101
  9. VALIUM [Concomitant]
     Dates: start: 20010115
  10. XANAX [Concomitant]
     Dosage: 1 MG - 4 MG DAILY
     Dates: start: 20010115
  11. SINEQUAN [Concomitant]
     Dosage: (UNKNOWN DOSE) 2 AT BED TIME
     Dates: start: 20010115
  12. TEGRETOL [Concomitant]
     Dates: start: 19950901
  13. PAXIL [Concomitant]
     Dates: start: 19960729
  14. ATIVAN [Concomitant]
     Indication: AGITATION
     Dosage: 0.5 MG THRICE DAILY UNLESS SEDATED, 1 MG EVERY 6 TH HOURLY AS REQUIRED
     Route: 048
     Dates: start: 20020423
  15. ATIVAN [Concomitant]
     Indication: ANXIETY
     Dosage: 0.5 MG THRICE DAILY UNLESS SEDATED, 1 MG EVERY 6 TH HOURLY AS REQUIRED
     Route: 048
     Dates: start: 20020423
  16. PROTONIX [Concomitant]
     Route: 042
     Dates: start: 20060525
  17. ADDERALL 10 [Concomitant]
     Dates: start: 20060703

REACTIONS (3)
  - BACK DISORDER [None]
  - NEUROLEPTIC MALIGNANT SYNDROME [None]
  - PANCREATITIS [None]
